FAERS Safety Report 8516935-4 (Version None)
Quarter: 2012Q3

REPORT INFORMATION
  Report Type: 
  Country: None (occurrence: None)
  Receive Date: 20120718
  Receipt Date: 20120711
  Transmission Date: 20120928
  Serious: Yes (Other)
  Sender: FDA-Public Use
  Company Number: JP-NAPPMUNDI-MAG-2012-0002196

PATIENT
  Sex: Female

DRUGS (8)
  1. REBAMIPIDE [Suspect]
     Indication: PRODUCT USED FOR UNKNOWN INDICATION
     Dosage: 300 MG, DAILY
     Route: 048
     Dates: start: 20120315, end: 20120519
  2. MEPIVACAINE HCL [Suspect]
     Indication: PRODUCT USED FOR UNKNOWN INDICATION
     Dosage: 10 MG, DAILY
     Route: 048
     Dates: start: 20120315, end: 20120519
  3. FAMOTIDINE [Concomitant]
     Indication: PRODUCT USED FOR UNKNOWN INDICATION
     Dosage: 20 MG, DAILY
     Route: 048
     Dates: start: 20120315, end: 20120519
  4. LEVOTHYROXINE SODIUM [Concomitant]
     Indication: PRODUCT USED FOR UNKNOWN INDICATION
     Dosage: 50 MCG, DAILY
     Route: 048
     Dates: start: 20120315, end: 20120519
  5. OLMESARTAN MEDOXOMIL [Concomitant]
     Dosage: 10 MG, DAILY
     Route: 048
     Dates: start: 20120315, end: 20120519
  6. BISOLVON [Concomitant]
     Dosage: 12 MG, DAILY
     Route: 048
     Dates: start: 20120315, end: 20120519
  7. THEOPHYLLINE [Suspect]
     Indication: ASTHMA
     Dosage: 200 MG, BID
     Route: 048
     Dates: start: 20120315, end: 20120519
  8. NIFEDIPINE [Suspect]
     Indication: PRODUCT USED FOR UNKNOWN INDICATION
     Dosage: 20 MG, DAILY
     Route: 048
     Dates: start: 20120315, end: 20120519

REACTIONS (3)
  - PRURITUS [None]
  - GENERALISED OEDEMA [None]
  - ERYTHEMA [None]
